FAERS Safety Report 12458337 (Version 3)
Quarter: 2016Q3

REPORT INFORMATION
  Report Type: Report from Study
  Country: FR (occurrence: FR)
  Receive Date: 20160613
  Receipt Date: 20160802
  Transmission Date: 20161109
  Serious: Yes (Hospitalization)
  Sender: FDA-Public Use
  Company Number: FR-ROCHE-1772835

PATIENT
  Age: 66 Year
  Sex: Female

DRUGS (6)
  1. VINCRISTINE SULPHATE [Suspect]
     Active Substance: VINCRISTINE SULFATE
     Indication: MANTLE CELL LYMPHOMA REFRACTORY
     Dosage: MOST RECENT DOSE ON 30/JAN/2012, 1 DF CYCLIC (IN 1 CYCLE)
     Route: 065
     Dates: start: 20120126
  2. TEMSIROLIMUS [Suspect]
     Active Substance: TEMSIROLIMUS
     Indication: MANTLE CELL LYMPHOMA REFRACTORY
     Dosage: MOST RECENT DOSE ON 02/FEB/2015 WAS 25 MG CYCLICALLY IN CYCLE 1 (ARM A)
     Route: 065
     Dates: start: 20120127
  3. CYCLOPHOSPHAMIDE. [Suspect]
     Active Substance: CYCLOPHOSPHAMIDE
     Indication: MANTLE CELL LYMPHOMA REFRACTORY
     Dosage: MOST RECENT DOSE ON 30/JAN/2012
     Route: 065
     Dates: start: 20120126
  4. PREDNISOLONE. [Suspect]
     Active Substance: PREDNISOLONE
     Indication: MANTLE CELL LYMPHOMA REFRACTORY
     Dosage: MOST RECENT DOSE ON 30/JAN/2012, 1 DF CYCLIC (IN 1 CYCLE)
     Route: 065
     Dates: start: 20120126
  5. DOXORUBICIN HCL [Suspect]
     Active Substance: DOXORUBICIN HYDROCHLORIDE
     Indication: MANTLE CELL LYMPHOMA REFRACTORY
     Dosage: MOST RECENT DOSE ON 30/JAN/2012, 1 DF CYCLIC (IN 1 CYCLE)
     Route: 065
     Dates: start: 20120126
  6. RITUXIMAB [Suspect]
     Active Substance: RITUXIMAB
     Indication: MANTLE CELL LYMPHOMA REFRACTORY
     Dosage: MOST RECENT DOSE ON 30/JAN/2012, 1 DF CYCLIC (IN 1 CYCLE)
     Route: 065
     Dates: start: 20120126

REACTIONS (3)
  - Febrile neutropenia [Recovered/Resolved]
  - Febrile bone marrow aplasia [Recovered/Resolved]
  - Gastrointestinal haemorrhage [Recovered/Resolved]

NARRATIVE: CASE EVENT DATE: 20120205
